FAERS Safety Report 17413756 (Version 2)
Quarter: 2020Q1

REPORT INFORMATION
  Report Type: Spontaneous
  Country: JP (occurrence: JP)
  Receive Date: 20200213
  Receipt Date: 20200311
  Transmission Date: 20200409
  Serious: Yes (Death, Other)
  Sender: FDA-Public Use
  Company Number: JP-GILEAD-2017-0300705

PATIENT
  Age: 77 Year
  Sex: Female

DRUGS (6)
  1. EMTRICITABINE/TENOFOVIR DF [Suspect]
     Active Substance: EMTRICITABINE
     Dosage: QOD
     Route: 065
  2. PENTAMIDINE [Concomitant]
     Active Substance: PENTAMIDINE
     Indication: OPPORTUNISTIC INFECTION PROPHYLAXIS
  3. TRIMETHOPRIM SULFAMETHOXAZOLE [Concomitant]
     Active Substance: SULFAMETHOXAZOLE\TRIMETHOPRIM
     Indication: OPPORTUNISTIC INFECTION PROPHYLAXIS
     Dosage: 1 DOSAGE FORM, QD
  4. AZITHROMYCIN ANHYDROUS. [Concomitant]
     Active Substance: AZITHROMYCIN ANHYDROUS
     Indication: OPPORTUNISTIC INFECTION PROPHYLAXIS
     Dosage: 120MG WEEKLY
  5. EMTRICITABINE/TENOFOVIR DF [Suspect]
     Active Substance: EMTRICITABINE
     Indication: HIV INFECTION
     Dosage: QD
     Route: 065
  6. EFAVIRENZ. [Concomitant]
     Active Substance: EFAVIRENZ
     Indication: HIV INFECTION
     Route: 065

REACTIONS (9)
  - Cachexia [Fatal]
  - Pneumonia aspiration [Fatal]
  - Metastases to liver [Unknown]
  - Metastases to lung [Unknown]
  - Off label use [Unknown]
  - Oesophageal carcinoma [Unknown]
  - Oesophageal squamous cell carcinoma metastatic [Unknown]
  - Metastases to lymph nodes [Unknown]
  - Renal impairment [Unknown]
